FAERS Safety Report 8101971-2 (Version None)
Quarter: 2012Q1

REPORT INFORMATION
  Report Type: 
  Country: None (occurrence: None)
  Receive Date: 20120131
  Receipt Date: 20120124
  Transmission Date: 20120608
  Serious: Yes (Other)
  Sender: FDA-Public Use
  Company Number: ES-GILEAD-2012-0049883

PATIENT
  Age: 32 Year
  Sex: Female

DRUGS (3)
  1. ADEFOVIR [Concomitant]
     Indication: HEPATITIS B
     Dosage: UNK
     Dates: start: 20100601, end: 20110301
  2. VIREAD [Suspect]
     Indication: HEPATITIS B
     Dosage: UNK
     Dates: start: 20110301
  3. LAMIVUDINE [Concomitant]
     Indication: HEPATITIS B
     Dosage: UNK
     Dates: start: 20070301

REACTIONS (1)
  - HYPOPHOSPHATAEMIA [None]
